FAERS Safety Report 7009517-7 (Version None)
Quarter: 2010Q3

REPORT INFORMATION
  Report Type: 
  Country: None (occurrence: None)
  Receive Date: 20100923
  Receipt Date: 20100914
  Transmission Date: 20110219
  Serious: Yes (Hospitalization, Other)
  Sender: FDA-Public Use
  Company Number: PHHO2010IN13264

PATIENT
  Sex: Female
  Weight: 38 kg

DRUGS (11)
  1. BLINDED ALISKIREN ALI+TAB+CF [Suspect]
     Dosage: DOUBLE BLIND
     Route: 048
     Dates: end: 20100901
  2. ENALAPRIL MALEATE [Suspect]
     Dosage: DOUBLE BLIND
     Route: 048
     Dates: end: 20100901
  3. BLINDED NO TREATMENT RECEIVED NOMED [Suspect]
     Dosage: DOUBLE BLIND
     Route: 048
     Dates: end: 20100901
  4. COMPARATOR ENALAPRIL [Suspect]
     Indication: CARDIAC FAILURE
     Dosage: UNK
     Route: 048
     Dates: start: 20100310, end: 20100901
  5. ALISKIREN [Suspect]
     Indication: CARDIAC FAILURE
     Dosage: UNK
     Dates: start: 20100416, end: 20100901
  6. CARVEDILOL [Concomitant]
     Indication: CARDIAC FAILURE
     Dosage: UNK
  7. FRUSEMIDE [Concomitant]
     Indication: CARDIAC FAILURE
     Dosage: UNK
  8. DIGOXIN [Concomitant]
     Indication: CARDIAC FAILURE
     Dosage: UNK
  9. FOLIC ACID [Concomitant]
  10. ZINCOVIT (VARIOUS VITAMINS AND MINERALS) [Concomitant]
  11. FERRIC HYDROXIDE POLYMALTOSE [Concomitant]

REACTIONS (3)
  - ABORTION INDUCED [None]
  - DRUG EXPOSURE DURING PREGNANCY [None]
  - DYSFUNCTIONAL UTERINE BLEEDING [None]
